FAERS Safety Report 23444185 (Version 1)
Quarter: 2024Q1

REPORT INFORMATION
  Report Type: Spontaneous
  Country: IT (occurrence: IT)
  Receive Date: 20240125
  Receipt Date: 20240125
  Transmission Date: 20240410
  Serious: Yes (Other)
  Sender: FDA-Public Use
  Company Number: IT-BAXTER-2024BAX011186

PATIENT
  Age: 40 Year
  Sex: Female

DRUGS (1)
  1. OLIMEL E [Suspect]
     Active Substance: AMINO ACIDS\DEXTROSE\ELECTROLYTES NOS\SOYBEAN OIL
     Dosage: AT AN UNSPECIFIED DOSE AND FREQUENCY, (ROUTE OF ADMINISTRATION: INFUSION)
     Route: 050

REACTIONS (1)
  - Anaphylactic reaction [Unknown]
